FAERS Safety Report 5600966-8 (Version None)
Quarter: 2008Q1

REPORT INFORMATION
  Report Type: 
  Country: None (occurrence: None)
  Receive Date: 20080124
  Receipt Date: 20080116
  Transmission Date: 20080703
  Serious: Yes (Death, Hospitalization, Other)
  Sender: FDA-Public Use
  Company Number: PHHY2008JP00577

PATIENT
  Sex: Female

DRUGS (1)
  1. DICLOFENAC SODIUM [Suspect]
     Indication: CANCER PAIN
     Dosage: 25 MG, 3 TO 4 SUPPOSITORY
     Route: 054

REACTIONS (5)
  - DISSEMINATED INTRAVASCULAR COAGULATION [None]
  - GASTROINTESTINAL EROSION [None]
  - HAEMATOCHEZIA [None]
  - MULTI-ORGAN FAILURE [None]
  - RECTAL HAEMORRHAGE [None]
